FAERS Safety Report 9106136 (Version 1)
Quarter: 2013Q1

REPORT INFORMATION
  Report Type: Report from Study
  Country: IT (occurrence: IT)
  Receive Date: 20130221
  Receipt Date: 20130221
  Transmission Date: 20140127
  Serious: Yes (Life-Threatening)
  Sender: FDA-Public Use
  Company Number: IT-009507513-1302ITA000626

PATIENT
  Age: 66 Year
  Sex: Male

DRUGS (6)
  1. INTERFERON ALFA-2B [Suspect]
     Indication: MALIGNANT MELANOMA STAGE III
     Dosage: 20 MU/M2/D, 5 DAYS/WEEK X4 WEEKS
     Route: 042
  2. INTERFERON ALFA-2B [Suspect]
     Dosage: 10 MU/M2, THREE TIMES/WEEK
     Route: 058
  3. ACETAMINOPHEN [Concomitant]
     Indication: PROPHYLAXIS
     Dosage: 1000 MG 30^ BEFORE IFNA2B
     Route: 048
  4. ACETAMINOPHEN [Concomitant]
     Dosage: UP TO A MAXIMUM OF 3000 MG/D, PRN
     Route: 048
  5. ONDANSETRON [Concomitant]
     Indication: PROPHYLAXIS OF NAUSEA AND VOMITING
     Dosage: 8 MG, UNK
     Route: 042
  6. GRANISETRON [Concomitant]
     Indication: PROPHYLAXIS OF NAUSEA AND VOMITING
     Dosage: 3 MG, UNK
     Route: 042

REACTIONS (1)
  - Cardiac disorder [Unknown]
